FAERS Safety Report 8508130-X (Version None)
Quarter: 2012Q3

REPORT INFORMATION
  Report Type: 
  Country: None (occurrence: None)
  Receive Date: 20120713
  Receipt Date: 20120703
  Transmission Date: 20120928
  Serious: Yes (Other)
  Sender: FDA-Public Use
  Company Number: PL-JNJFOC-20120701673

PATIENT
  Sex: Female

DRUGS (1)
  1. RISPERIDONE [Suspect]
     Indication: SCHIZOPHRENIA
     Route: 065

REACTIONS (4)
  - GALACTORRHOEA [None]
  - ADRENAL GLOMERULAR ZONE ABNORMAL [None]
  - AUTOIMMUNE THYROIDITIS [None]
  - AMENORRHOEA [None]
